FAERS Safety Report 23629377 (Version 3)
Quarter: 2024Q4

REPORT INFORMATION
  Report Type: Report from Study
  Country: ZA (occurrence: ZA)
  Receive Date: 20240313
  Receipt Date: 20241125
  Transmission Date: 20250115
  Serious: Yes (Other)
  Sender: NOVARTIS
  Company Number: ZA-002147023-NVSC2024ZA049361

PATIENT
  Age: 87 Year
  Sex: Female

DRUGS (1)
  1. BROLUCIZUMAB [Suspect]
     Active Substance: BROLUCIZUMAB
     Indication: Neovascular age-related macular degeneration
     Dosage: 6 MG IN 0.23ML, QMO
     Route: 047
     Dates: start: 20230710, end: 20240123

REACTIONS (1)
  - Retinal vasculitis [Recovering/Resolving]

NARRATIVE: CASE EVENT DATE: 20240305
